FAERS Safety Report 15617046 (Version 2)
Quarter: 2019Q3

REPORT INFORMATION
  Report Type: Spontaneous
  Country: US (occurrence: US)
  Receive Date: 20181114
  Receipt Date: 20190816
  Transmission Date: 20191004
  Serious: No
  Sender: FDA-Public Use
  Company Number: US-PFIZER INC-2018307450

PATIENT
  Age: 55 Year
  Sex: Male
  Weight: 72.57 kg

DRUGS (2)
  1. RELPAX [Suspect]
     Active Substance: ELETRIPTAN HYDROBROMIDE
     Indication: HEADACHE
  2. RELPAX [Suspect]
     Active Substance: ELETRIPTAN HYDROBROMIDE
     Indication: MIGRAINE
     Dosage: 40 MG, AS NEEDED (1 TABLET BY MOUTH MAY REPEAT AFTER2 HOURS NO MORE THAN TWO DOSES WITHIN 24 HOUR)
     Route: 048

REACTIONS (1)
  - Headache [Not Recovered/Not Resolved]
